FAERS Safety Report 20184644 (Version 2)
Quarter: 2021Q4

REPORT INFORMATION
  Report Type: Spontaneous
  Country: US (occurrence: US)
  Receive Date: 20211214
  Receipt Date: 20211214
  Transmission Date: 20220303
  Serious: No
  Sender: FDA-Public Use
  Company Number: US-NOVOPROD-852473

PATIENT
  Sex: Female

DRUGS (2)
  1. NOVOLIN N [Suspect]
     Active Substance: INSULIN HUMAN
     Indication: Product used for unknown indication
     Dosage: 70 IU, BID
     Route: 058
     Dates: start: 201609
  2. NOVOLIN R [Suspect]
     Active Substance: INSULIN HUMAN
     Indication: Product used for unknown indication
     Dosage: 12 IU, BID
     Route: 058
     Dates: start: 201609

REACTIONS (3)
  - Rash pruritic [Unknown]
  - Urticaria [Recovered/Resolved]
  - Eye swelling [Unknown]
